FAERS Safety Report 6027623-0 (Version None)
Quarter: 2009Q1

REPORT INFORMATION
  Report Type: 
  Country: None (occurrence: None)
  Receive Date: 20090105
  Receipt Date: 20080701
  Transmission Date: 20090719
  Serious: No
  Sender: FDA-Public Use
  Company Number: UM-BAYER-200813043BCC

PATIENT
  Age: 38 Year
  Sex: Male
  Weight: 88 kg

DRUGS (1)
  1. ALEVE [Suspect]
     Indication: JOINT SPRAIN
     Dosage: TOTAL DAILY DOSE: 1320 MG  UNIT DOSE: 220 MG
     Route: 048
     Dates: start: 20080701

REACTIONS (3)
  - EUPHORIC MOOD [None]
  - FEELING DRUNK [None]
  - SOMNOLENCE [None]
